FAERS Safety Report 13702506 (Version 2)
Quarter: 2017Q3

REPORT INFORMATION
  Report Type: Spontaneous
  Country: GB (occurrence: GB)
  Receive Date: 20170629
  Receipt Date: 20170705
  Transmission Date: 20171127
  Serious: Yes (Death, Other)
  Sender: FDA-Public Use
  Company Number: GB-SA-2017SA116292

PATIENT
  Age: 80 Year
  Sex: Male
  Weight: 45 kg

DRUGS (1)
  1. CLEXANE [Suspect]
     Active Substance: ENOXAPARIN SODIUM
     Route: 065

REACTIONS (3)
  - Haemorrhage intracranial [Unknown]
  - Fall [Unknown]
  - Subdural haemorrhage [Fatal]
